FAERS Safety Report 4787938-0 (Version None)
Quarter: 2005Q3

REPORT INFORMATION
  Report Type: 
  Country: None (occurrence: None)
  Receive Date: 20050926
  Receipt Date: 20050630
  Transmission Date: 20060218
  Serious: Yes (Hospitalization)
  Sender: FDA-Public Use
  Company Number: 215452

PATIENT
  Age: 64 Year
  Sex: 0
  Weight: 68.5 kg

DRUGS (7)
  1. AVASTIN [Suspect]
     Indication: COLORECTAL CANCER
     Dosage: 340 MG, Q2W, INTRAVENOUS
     Route: 042
     Dates: start: 20040512
  2. CAMPTOSAR [Concomitant]
  3. FLUOROURACIL [Concomitant]
  4. ZOFRAN [Concomitant]
  5. DECADRON [Concomitant]
  6. BENADRYL [Concomitant]
  7. ZANTAC [Concomitant]

REACTIONS (2)
  - CONFUSIONAL STATE [None]
  - HYPONATRAEMIA [None]
